FAERS Safety Report 7473575-6 (Version None)
Quarter: 2011Q2

REPORT INFORMATION
  Report Type: 
  Country: None (occurrence: None)
  Receive Date: 20110511
  Receipt Date: 20110505
  Transmission Date: 20111010
  Serious: Yes (Other)
  Sender: FDA-Public Use
  Company Number: US-MERCK-1105USA01285

PATIENT
  Age: 42 Year
  Sex: Male

DRUGS (1)
  1. PRIMAXIN [Suspect]
     Indication: TOOTH ABSCESS
     Route: 065

REACTIONS (1)
  - PSEUDOMONAS INFECTION [None]
